FAERS Safety Report 5674265-2 (Version None)
Quarter: 2008Q1

REPORT INFORMATION
  Report Type: 
  Country: None (occurrence: None)
  Receive Date: 20080320
  Receipt Date: 20080306
  Transmission Date: 20080703
  Serious: Yes (Hospitalization, Other)
  Sender: FDA-Public Use
  Company Number: DE-AMGEN-UK264034

PATIENT
  Sex: Male
  Weight: 81.5 kg

DRUGS (9)
  1. MIMPARA [Suspect]
     Indication: DRUG USE FOR UNKNOWN INDICATION
     Route: 048
     Dates: start: 20061027
  2. ASPIRIN [Concomitant]
     Route: 065
  3. DIGITOXIN INJ [Concomitant]
     Route: 065
  4. CALCIUM ACETATE [Concomitant]
     Route: 065
  5. OMEPRAZOLE [Concomitant]
     Route: 065
  6. FLUVASTATIN [Concomitant]
     Route: 065
  7. ARANESP [Concomitant]
     Route: 042
  8. GABAPENTIN [Concomitant]
     Route: 065
  9. FERRLECIT [Concomitant]
     Route: 042

REACTIONS (6)
  - CARPAL TUNNEL SYNDROME [None]
  - IMPAIRED HEALING [None]
  - POST PROCEDURAL COMPLICATION [None]
  - SYNCOPE [None]
  - WOUND DEHISCENCE [None]
  - WOUND INFECTION [None]
